FAERS Safety Report 24828309 (Version 2)
Quarter: 2025Q1

REPORT INFORMATION
  Report Type: Other
  Country: CA (occurrence: CA)
  Receive Date: 20250109
  Receipt Date: 20250124
  Transmission Date: 20250408
  Serious: Yes (Death, Life-Threatening, Hospitalization, Other)
  Sender: SS PHARMA LLC
  Company Number: CA-SSPHARMA-2025CASSP00002

PATIENT
  Age: 65 Year
  Sex: Male

DRUGS (126)
  1. ERGOCALCIFEROL [Suspect]
     Active Substance: ERGOCALCIFEROL
     Indication: Product used for unknown indication
  2. FUROSEMIDE [Concomitant]
     Active Substance: FUROSEMIDE
     Indication: Product used for unknown indication
  3. FUROSEMIDE [Concomitant]
     Active Substance: FUROSEMIDE
  4. FUROSEMIDE [Concomitant]
     Active Substance: FUROSEMIDE
  5. FUROSEMIDE [Concomitant]
     Active Substance: FUROSEMIDE
  6. AZITHROMYCIN [Concomitant]
     Active Substance: AZITHROMYCIN
     Indication: Product used for unknown indication
  7. AZITHROMYCIN [Concomitant]
     Active Substance: AZITHROMYCIN
  8. AZITHROMYCIN [Concomitant]
     Active Substance: AZITHROMYCIN
  9. AZITHROMYCIN [Concomitant]
     Active Substance: AZITHROMYCIN
  10. AZITHROMYCIN [Concomitant]
     Active Substance: AZITHROMYCIN
  11. BUDESONIDE [Concomitant]
     Active Substance: BUDESONIDE
     Indication: Product used for unknown indication
  12. CALCIUM CARBONATE [Concomitant]
     Active Substance: CALCIUM CARBONATE
     Indication: Product used for unknown indication
  13. CALCIUM CARBONATE [Concomitant]
     Active Substance: CALCIUM CARBONATE
  14. CANDESARTAN CILEXETIL [Concomitant]
     Active Substance: CANDESARTAN CILEXETIL
     Indication: Product used for unknown indication
  15. CANDESARTAN CILEXETIL [Concomitant]
     Active Substance: CANDESARTAN CILEXETIL
  16. CANDESARTAN CILEXETIL HYDROCHLOROTHIAZIDE [Concomitant]
     Active Substance: CANDESARTAN CILEXETIL\HYDROCHLOROTHIAZIDE
     Indication: Product used for unknown indication
     Route: 048
  17. CANDESARTAN CILEXETIL HYDROCHLOROTHIAZIDE [Concomitant]
     Active Substance: CANDESARTAN CILEXETIL\HYDROCHLOROTHIAZIDE
     Route: 048
  18. CANDESARTAN CILEXETIL HYDROCHLOROTHIAZIDE [Concomitant]
     Active Substance: CANDESARTAN CILEXETIL\HYDROCHLOROTHIAZIDE
     Route: 048
  19. CEFUROXIME AXETI [Concomitant]
     Indication: Product used for unknown indication
  20. CEFUROXIME AXETI [Concomitant]
  21. CEFUROXIME AXETI [Concomitant]
  22. CEFUROXIME AXETI [Concomitant]
  23. CEFUROXIME SODIUM [Concomitant]
     Active Substance: CEFUROXIME SODIUM
     Indication: Product used for unknown indication
  24. CEFUROXIME SODIUM [Concomitant]
     Active Substance: CEFUROXIME SODIUM
  25. CEFUROXIME SODIUM [Concomitant]
     Active Substance: CEFUROXIME SODIUM
  26. CEFUROXIME SODIUM [Concomitant]
     Active Substance: CEFUROXIME SODIUM
  27. CLOTRIMAZOLE [Concomitant]
     Active Substance: CLOTRIMAZOLE
     Indication: Product used for unknown indication
  28. DOMPERIDONE MALEATE [Concomitant]
     Active Substance: DOMPERIDONE MALEATE
     Indication: Product used for unknown indication
  29. DOMPERIDONE MALEATE [Concomitant]
     Active Substance: DOMPERIDONE MALEATE
  30. DOMPERIDONE MALEATE [Concomitant]
     Active Substance: DOMPERIDONE MALEATE
  31. DOMPERIDONE MALEATE [Concomitant]
     Active Substance: DOMPERIDONE MALEATE
  32. DOMPERIDONE MALEATE [Concomitant]
     Active Substance: DOMPERIDONE MALEATE
  33. APIXABAN [Concomitant]
     Active Substance: APIXABAN
     Indication: Product used for unknown indication
  34. LEVOTHYROXINE SODIUM [Concomitant]
     Active Substance: LEVOTHYROXINE SODIUM
     Indication: Product used for unknown indication
  35. INSULIN GLARGINE [Concomitant]
     Active Substance: INSULIN GLARGINE
     Indication: Product used for unknown indication
     Route: 058
  36. METFORMIN HYDROCHLORIDE [Concomitant]
     Active Substance: METFORMIN HYDROCHLORIDE
     Indication: Product used for unknown indication
  37. METFORMIN HYDROCHLORIDE [Concomitant]
     Active Substance: METFORMIN HYDROCHLORIDE
  38. METFORMIN HYDROCHLORIDE [Concomitant]
     Active Substance: METFORMIN HYDROCHLORIDE
  39. METFORMIN HYDROCHLORIDE [Concomitant]
     Active Substance: METFORMIN HYDROCHLORIDE
  40. METFORMIN HYDROCHLORIDE [Concomitant]
     Active Substance: METFORMIN HYDROCHLORIDE
  41. METFORMIN HYDROCHLORIDE [Concomitant]
     Active Substance: METFORMIN HYDROCHLORIDE
  42. ADVAIR HFA [Concomitant]
     Active Substance: FLUTICASONE PROPIONATE\SALMETEROL XINAFOATE
     Indication: Product used for unknown indication
  43. ALENDRONATE SODIUM [Concomitant]
     Active Substance: ALENDRONATE SODIUM
     Indication: Product used for unknown indication
  44. PANTOPRAZOLE SODIUM [Concomitant]
     Active Substance: PANTOPRAZOLE SODIUM
     Indication: Product used for unknown indication
  45. PANTOPRAZOLE SODIUM [Concomitant]
     Active Substance: PANTOPRAZOLE SODIUM
  46. PANTOPRAZOLE SODIUM [Concomitant]
     Active Substance: PANTOPRAZOLE SODIUM
  47. PANTOPRAZOLE SODIUM [Concomitant]
     Active Substance: PANTOPRAZOLE SODIUM
  48. PANTOPRAZOLE SODIUM [Concomitant]
     Active Substance: PANTOPRAZOLE SODIUM
  49. PANTOPRAZOLE SODIUM [Concomitant]
     Active Substance: PANTOPRAZOLE SODIUM
  50. PANTOPRAZOLE SODIUM [Concomitant]
     Active Substance: PANTOPRAZOLE SODIUM
  51. PANTOPRAZOLE SODIUM [Concomitant]
     Active Substance: PANTOPRAZOLE SODIUM
  52. PANTOPRAZOLE SODIUM [Concomitant]
     Active Substance: PANTOPRAZOLE SODIUM
  53. AZATHIOPRINE [Concomitant]
     Active Substance: AZATHIOPRINE
     Indication: Product used for unknown indication
  54. AZATHIOPRINE [Concomitant]
     Active Substance: AZATHIOPRINE
     Route: 048
  55. AZATHIOPRINE [Concomitant]
     Active Substance: AZATHIOPRINE
  56. AZATHIOPRINE [Concomitant]
     Active Substance: AZATHIOPRINE
  57. AZATHIOPRINE [Concomitant]
     Active Substance: AZATHIOPRINE
     Route: 042
  58. AZATHIOPRINE [Concomitant]
     Active Substance: AZATHIOPRINE
     Route: 042
  59. BETA GLUCAN [Concomitant]
     Active Substance: BETA GLUCAN
     Indication: Product used for unknown indication
  60. BETAMETHASONE [Concomitant]
     Active Substance: BETAMETHASONE
     Indication: Product used for unknown indication
  61. BETAMETHASONE DIPROPIONATE [Concomitant]
     Active Substance: BETAMETHASONE DIPROPIONATE
     Indication: Product used for unknown indication
  62. BETAMETHASONE DIPROPIONATE\CLOTRIMAZOLE [Concomitant]
     Active Substance: BETAMETHASONE DIPROPIONATE\CLOTRIMAZOLE
     Indication: Product used for unknown indication
  63. CANDESARTAN [Concomitant]
     Active Substance: CANDESARTAN
     Indication: Product used for unknown indication
     Route: 048
  64. CANDESARTAN [Concomitant]
     Active Substance: CANDESARTAN
  65. CANDESARTAN [Concomitant]
     Active Substance: CANDESARTAN
  66. CANDESARTAN CILEXETIL HYDROCHLOROTHIAZIDE [Concomitant]
     Active Substance: CANDESARTAN CILEXETIL\HYDROCHLOROTHIAZIDE
     Indication: Product used for unknown indication
     Route: 048
  67. CANDESARTAN CILEXETIL HYDROCHLOROTHIAZIDE [Concomitant]
     Active Substance: CANDESARTAN CILEXETIL\HYDROCHLOROTHIAZIDE
     Route: 048
  68. CANDESARTAN CILEXETIL HYDROCHLOROTHIAZIDE [Concomitant]
     Active Substance: CANDESARTAN CILEXETIL\HYDROCHLOROTHIAZIDE
     Route: 048
  69. CEFUROXIME [Concomitant]
     Active Substance: CEFUROXIME
     Indication: Product used for unknown indication
  70. CEFUROXIME [Concomitant]
     Active Substance: CEFUROXIME
  71. CEFUROXIME [Concomitant]
     Active Substance: CEFUROXIME
  72. CEFUROXIME [Concomitant]
     Active Substance: CEFUROXIME
  73. CEFUROXIME [Concomitant]
     Active Substance: CEFUROXIME
  74. CEPHALEXIN [Concomitant]
     Active Substance: CEPHALEXIN
     Indication: Product used for unknown indication
  75. CEPHALEXIN [Concomitant]
     Active Substance: CEPHALEXIN
  76. FINASTERIDE; TAMSULOSIN HYDROCHLORIDE [Concomitant]
     Indication: Product used for unknown indication
  77. GLUCAGON [Concomitant]
     Active Substance: GLUCAGON
     Indication: Product used for unknown indication
  78. GLUCAGON HYDROCHLORIDE [Concomitant]
     Active Substance: GLUCAGON HYDROCHLORIDE
     Indication: Product used for unknown indication
  79. CHOLECALCIFEROL [Concomitant]
     Active Substance: CHOLECALCIFEROL
     Indication: Product used for unknown indication
  80. LEVOFLOXACIN [Concomitant]
     Active Substance: LEVOFLOXACIN
     Indication: Product used for unknown indication
  81. LEVOFLOXACIN [Concomitant]
     Active Substance: LEVOFLOXACIN
  82. LEVOFLOXACIN [Concomitant]
     Active Substance: LEVOFLOXACIN
  83. LEVOFLOXACIN [Concomitant]
     Active Substance: LEVOFLOXACIN
  84. LEVOFLOXACIN HEMIHYDRATE [Concomitant]
     Active Substance: LEVOFLOXACIN
     Indication: Product used for unknown indication
  85. LEVOFLOXACIN HEMIHYDRATE [Concomitant]
     Active Substance: LEVOFLOXACIN
  86. LEVOFLOXACIN HEMIHYDRATE [Concomitant]
     Active Substance: LEVOFLOXACIN
  87. LIRAGLUTIDE [Concomitant]
     Active Substance: LIRAGLUTIDE
     Indication: Product used for unknown indication
  88. MAGNESIUM OXIDE [Concomitant]
     Active Substance: MAGNESIUM OXIDE
     Indication: Product used for unknown indication
  89. MAGNESIUM OXIDE [Concomitant]
     Active Substance: MAGNESIUM OXIDE
  90. MAGNESIUM OXIDE [Concomitant]
     Active Substance: MAGNESIUM OXIDE
  91. MAGNESIUM OXIDE [Concomitant]
     Active Substance: MAGNESIUM OXIDE
  92. MORNIFLUMATE [Concomitant]
     Active Substance: MORNIFLUMATE
     Indication: Product used for unknown indication
  93. PANTOPRAZOLE [Concomitant]
     Active Substance: PANTOPRAZOLE
     Indication: Product used for unknown indication
  94. PANTOPRAZOLE [Concomitant]
     Active Substance: PANTOPRAZOLE
  95. PANTOPRAZOLE [Concomitant]
     Active Substance: PANTOPRAZOLE
  96. PANTOPRAZOLE [Concomitant]
     Active Substance: PANTOPRAZOLE
  97. PANTOPRAZOLE [Concomitant]
     Active Substance: PANTOPRAZOLE
  98. PANTOPRAZOLE MAGNESIUM [Concomitant]
     Active Substance: PANTOPRAZOLE MAGNESIUM
     Indication: Product used for unknown indication
  99. PENICILLIN G SODIUM [Concomitant]
     Active Substance: PENICILLIN G SODIUM
     Indication: Product used for unknown indication
  100. ALBUTEROL [Concomitant]
     Active Substance: ALBUTEROL
     Indication: Eosinophilic granulomatosis with polyangiitis
  101. ALBUTEROL [Concomitant]
     Active Substance: ALBUTEROL
  102. ALBUTEROL [Concomitant]
     Active Substance: ALBUTEROL
  103. CALCIUM SENNOSIDES [Concomitant]
     Active Substance: SENNOSIDES
     Indication: Product used for unknown indication
  104. SULFAMETHOXAZOLE\TRIMETHOPRIM [Concomitant]
     Active Substance: SULFAMETHOXAZOLE\TRIMETHOPRIM
     Indication: Prophylaxis
  105. SULFAMETHOXAZOLE\TRIMETHOPRIM [Concomitant]
     Active Substance: SULFAMETHOXAZOLE\TRIMETHOPRIM
  106. SULFADIAZINE [Concomitant]
     Active Substance: SULFADIAZINE
     Indication: Product used for unknown indication
  107. SULFADIAZINE\TRIMETHOPRIM [Concomitant]
     Active Substance: SULFADIAZINE\TRIMETHOPRIM
     Indication: Product used for unknown indication
  108. TAMSULOSIN [Concomitant]
     Active Substance: TAMSULOSIN
     Indication: Product used for unknown indication
  109. Pantoprazole hemimagnesium hydrate [Concomitant]
     Indication: Product used for unknown indication
  110. Pantoprazole hemimagnesium hydrate [Concomitant]
  111. Pantoprazole hemimagnesium hydrate [Concomitant]
  112. THIAMINE HYDROCHLORIDE [Concomitant]
     Active Substance: THIAMINE HYDROCHLORIDE
     Indication: Product used for unknown indication
  113. TIOTROPIUM BROMIDE MONOHYDRATE [Concomitant]
     Active Substance: TIOTROPIUM BROMIDE MONOHYDRATE
     Indication: Product used for unknown indication
  114. TRELEGY ELLIPTA [Concomitant]
     Active Substance: FLUTICASONE FUROATE\UMECLIDINIUM BROMIDE\VILANTEROL TRIFENATATE
     Indication: Product used for unknown indication
  115. UMECLIDINIUM BROMIDE [Concomitant]
     Active Substance: UMECLIDINIUM BROMIDE
     Indication: Product used for unknown indication
  116. UMECLIDINIUM BROMIDE [Concomitant]
     Active Substance: UMECLIDINIUM BROMIDE
  117. UMECLIDINIUM BROMIDE AND VILANTEROL TRIFENATATE [Concomitant]
     Active Substance: UMECLIDINIUM BROMIDE\VILANTEROL TRIFENATATE
     Indication: Product used for unknown indication
  118. VITAMIN D [Concomitant]
     Active Substance: VITAMIN D NOS
     Indication: Product used for unknown indication
  119. VITAMIN D3 [Concomitant]
     Active Substance: CHOLECALCIFEROL
     Indication: Product used for unknown indication
  120. PREDNISONE [Concomitant]
     Active Substance: PREDNISONE
     Indication: Product used for unknown indication
  121. PREDNISONE [Concomitant]
     Active Substance: PREDNISONE
  122. PREDNISONE [Concomitant]
     Active Substance: PREDNISONE
  123. SERTRALINE HYDROCHLORIDE [Concomitant]
     Active Substance: SERTRALINE HYDROCHLORIDE
     Indication: Product used for unknown indication
  124. INSULIN ASPART [Concomitant]
     Active Substance: INSULIN ASPART
     Indication: Product used for unknown indication
     Route: 058
  125. BUDESONIDE\FORMOTEROL FUMARATE [Concomitant]
     Active Substance: BUDESONIDE\FORMOTEROL FUMARATE
     Indication: Product used for unknown indication
  126. MONTELUKAST SODIUM [Concomitant]
     Active Substance: MONTELUKAST SODIUM
     Indication: Product used for unknown indication

REACTIONS (39)
  - Death [Fatal]
  - Antineutrophil cytoplasmic antibody positive [Fatal]
  - Anxiety [Fatal]
  - Arteriosclerosis [Fatal]
  - Arteriosclerosis coronary artery [Fatal]
  - Asthma [Fatal]
  - Condition aggravated [Fatal]
  - Conjunctivitis allergic [Fatal]
  - Dust allergy [Fatal]
  - Dyspnoea [Fatal]
  - Eosinophilic granulomatosis with polyangiitis [Fatal]
  - Forced expiratory volume decreased [Fatal]
  - Full blood count abnormal [Fatal]
  - Hypoxia [Fatal]
  - Loss of personal independence in daily activities [Fatal]
  - Lung disorder [Fatal]
  - Mite allergy [Fatal]
  - Neuritis [Fatal]
  - Neurological symptom [Fatal]
  - Nodule [Fatal]
  - Normochromic normocytic anaemia [Fatal]
  - Obstructive airways disorder [Fatal]
  - Productive cough [Fatal]
  - Pulmonary alveolar haemorrhage [Fatal]
  - Pulmonary embolism [Fatal]
  - Pulmonary fibrosis [Fatal]
  - Pulmonary vasculitis [Fatal]
  - Thrombosis [Fatal]
  - Vasculitis [Fatal]
  - Total lung capacity abnormal [Fatal]
  - Spirometry abnormal [Fatal]
  - Sleep disorder due to a general medical condition [Fatal]
  - Respiratory symptom [Fatal]
  - Pain in extremity [Fatal]
  - Wheezing [Fatal]
  - Haemoptysis [Fatal]
  - Mycotic allergy [Fatal]
  - Hypothyroidism [Fatal]
  - Therapeutic product effect incomplete [Fatal]
